FAERS Safety Report 17631548 (Version 1)
Quarter: 2020Q2

REPORT INFORMATION
  Report Type: Spontaneous
  Country: US (occurrence: US)
  Receive Date: 20200403
  Receipt Date: 20200403
  Transmission Date: 20200713
  Serious: Yes (Death)
  Sender: FDA-Public Use
  Company Number: None

PATIENT
  Age: 75 Year
  Sex: Male

DRUGS (3)
  1. CYCLOPHOSPHAMIDE 50MG ROXANE [Suspect]
     Active Substance: CYCLOPHOSPHAMIDE
     Indication: TYPE 2 DIABETES MELLITUS
     Route: 048
     Dates: start: 201912
  2. CYCLOPHOSPHAMIDE 50MG ROXANE [Suspect]
     Active Substance: CYCLOPHOSPHAMIDE
     Indication: DIABETIC COMPLICATION
     Route: 048
     Dates: start: 201912
  3. CYCLOPHOSPHAMIDE 50MG ROXANE [Suspect]
     Active Substance: CYCLOPHOSPHAMIDE
     Indication: RENAL DISORDER
     Route: 048
     Dates: start: 201912

REACTIONS (1)
  - Death [None]

NARRATIVE: CASE EVENT DATE: 20200109
